FAERS Safety Report 8782606 (Version 4)
Quarter: 2012Q4

REPORT INFORMATION
  Report Type: 
  Country: GB (occurrence: GB)
  Receive Date: 20120913
  Receipt Date: 20121105
  Transmission Date: 20130627
  Serious: Yes (Other)
  Sender: FDA-Public Use
  Company Number: GB-PFIZER INC-2012222459

PATIENT
  Age: 52 Year
  Sex: Male
  Weight: 69 kg

DRUGS (6)
  1. RAMIPRIL [Suspect]
     Indication: BLOOD PRESSURE HIGH
     Dosage: 10 mg, 1x/day
     Route: 048
     Dates: start: 201105
  2. RAMIPRIL [Suspect]
     Dosage: 10 mg, 1x/day
     Route: 048
     Dates: start: 20120809, end: 20120813
  3. EZETIMIBE [Concomitant]
     Indication: HIGH CHOLESTEROL
     Dosage: 10 mg, 1x/day
  4. GLICLAZIDE [Concomitant]
     Indication: DIABETES
     Dosage: 80 mg, half a tablet twice daily, breakfast and main meal
  5. BECONASE [Concomitant]
     Indication: HAY FEVER
     Dosage: 1 puff, 2x/day
     Route: 045
  6. FLIXOTIDE [Concomitant]
     Indication: ASTHMA PROPHYLAXIS
     Dosage: 1 puff, 2x/day (AM and PM)

REACTIONS (3)
  - Drug ineffective [Recovered/Resolved]
  - Dysgeusia [Recovered/Resolved]
  - Product taste abnormal [Unknown]
